FAERS Safety Report 15838512 (Version 1)
Quarter: 2019Q1

REPORT INFORMATION
  Report Type: Spontaneous
  Country: US (occurrence: US)
  Receive Date: 20190117
  Receipt Date: 20190117
  Transmission Date: 20190417
  Serious: Yes (Life-Threatening, Hospitalization, Other)
  Sender: FDA-Public Use
  Company Number: US-TEVA-2019-US-997337

PATIENT
  Age: 2 Year
  Sex: Female

DRUGS (2)
  1. PROPOFOL. [Suspect]
     Active Substance: PROPOFOL
     Indication: ANAESTHESIA
     Dosage: INFUSION
     Route: 065
  2. SUCCINYLCHOLINE [Suspect]
     Active Substance: SUCCINYLCHOLINE
     Indication: LARYNGOSPASM
     Route: 065

REACTIONS (5)
  - Hypoxia [Recovered/Resolved]
  - Stridor [Unknown]
  - Bradycardia [Recovered/Resolved]
  - Laryngospasm [Recovered/Resolved]
  - Hypokalaemia [Recovered/Resolved]
